FAERS Safety Report 17403366 (Version 2)
Quarter: 2020Q1

REPORT INFORMATION
  Report Type: Spontaneous
  Country: US (occurrence: US)
  Receive Date: 20200211
  Receipt Date: 20200309
  Transmission Date: 20200409
  Serious: No
  Sender: FDA-Public Use
  Company Number: US-VERTEX PHARMACEUTICALS-2019-013944

PATIENT
  Age: 33 Year
  Sex: Female

DRUGS (31)
  1. KITABIS PAK [Suspect]
     Active Substance: TOBRAMYCIN
     Indication: CYSTIC FIBROSIS
     Dosage: 1 VIAL, BID
     Dates: start: 20180517
  2. DOXYCYCLINE. [Concomitant]
     Active Substance: DOXYCYCLINE
  3. MONTELUKAST [Concomitant]
     Active Substance: MONTELUKAST SODIUM
  4. POLYETHYLENE GLYCOL [Concomitant]
     Active Substance: POLYETHYLENE GLYCOLS
  5. PROVENTIL HFA [Concomitant]
     Active Substance: ALBUTEROL SULFATE
  6. SUPREP BOWEL PREP [Concomitant]
     Active Substance: MAGNESIUM SULFATE\POTASSIUM SULFATE\SODIUM SULFATE
  7. NITRO BID [Concomitant]
  8. SMOOTH LAX [Concomitant]
     Active Substance: POLYETHYLENE GLYCOL 3350
  9. CEFDINIR. [Concomitant]
     Active Substance: CEFDINIR
  10. FLUTICASONE. [Concomitant]
     Active Substance: FLUTICASONE
  11. CETIRIZINE [Concomitant]
     Active Substance: CETIRIZINE HYDROCHLORIDE
  12. CYCLOBENZAPRINE. [Concomitant]
     Active Substance: CYCLOBENZAPRINE
  13. LINEZOLID. [Concomitant]
     Active Substance: LINEZOLID
  14. PULMICORT TURBUHALER [Concomitant]
     Active Substance: BUDESONIDE
  15. SCOPOLAMINE AMINOXIDE [Concomitant]
     Active Substance: SCOPOLAMINE N-OXIDE
  16. SODIUM CHLORIDE. [Concomitant]
     Active Substance: SODIUM CHLORIDE
  17. SULFASALAZINE DELAYED-RELEASE [Concomitant]
     Active Substance: SULFASALAZINE
  18. VALACYCLOVIR HCL [Concomitant]
     Active Substance: VALACYCLOVIR HYDROCHLORIDE
  19. DRONABINOL. [Concomitant]
     Active Substance: DRONABINOL
  20. FLUCONAZOLE. [Concomitant]
     Active Substance: FLUCONAZOLE
  21. LANTUS [Concomitant]
     Active Substance: INSULIN GLARGINE
  22. NOVOLOG [Concomitant]
     Active Substance: INSULIN ASPART
  23. TRANEX [Concomitant]
     Active Substance: TRANEXAMIC ACID
  24. VIT D [Concomitant]
     Active Substance: VITAMIN D NOS
  25. TRIKAFTA [Suspect]
     Active Substance: ELEXACAFTOR\IVACAFTOR\TEZACAFTOR
     Indication: CYSTIC FIBROSIS
     Dosage: 100 MG ELEXACAFTOR/ 50 MG TEZACAFTOR/ 75 MG IVACAFTOR (2 TABS IN AM); 150MG IVACAFTOR (1 TAB IN PM)
     Route: 048
     Dates: start: 20191209
  26. ENEMEEZ [DOCUSATE SODIUM] [Concomitant]
  27. PANTOPRAZOL A [Concomitant]
  28. ALBUTEROL [SALBUTAMOL] [Concomitant]
     Active Substance: ALBUTEROL
  29. CREON [Concomitant]
     Active Substance: PANCRELIPASE AMYLASE\PANCRELIPASE LIPASE\PANCRELIPASE PROTEASE
  30. LIDO [Concomitant]
  31. ONDANSETRON [Concomitant]
     Active Substance: ONDANSETRON

REACTIONS (13)
  - Rash [Recovered/Resolved]
  - Headache [Not Recovered/Not Resolved]
  - Peripheral swelling [Not Recovered/Not Resolved]
  - Gastrointestinal disorder [Not Recovered/Not Resolved]
  - Dysphagia [Unknown]
  - Abdominal pain upper [Not Recovered/Not Resolved]
  - Weight gain poor [Unknown]
  - Paranasal sinus discomfort [Unknown]
  - Fatigue [Not Recovered/Not Resolved]
  - Dizziness [Recovered/Resolved]
  - Fungal infection [Not Recovered/Not Resolved]
  - Cough [Recovered/Resolved]
  - Eczema [Unknown]

NARRATIVE: CASE EVENT DATE: 201912
